FAERS Safety Report 18106723 (Version 2)
Quarter: 2020Q3

REPORT INFORMATION
  Report Type: Spontaneous
  Country: IT (occurrence: IT)
  Receive Date: 20200804
  Receipt Date: 20200805
  Transmission Date: 20201103
  Serious: Yes (Death, Other)
  Sender: FDA-Public Use
  Company Number: IT-PFIZER INC-2020290612

PATIENT
  Age: 64 Year
  Sex: Female

DRUGS (15)
  1. IDELALISIB [Suspect]
     Active Substance: IDELALISIB
     Dosage: 100 MG, 2X/DAY (FREQ:.5 D;RESTARTED AT A REDUCED DOSE)
     Route: 048
  2. IDELALISIB [Suspect]
     Active Substance: IDELALISIB
     Dosage: 150 MG
     Route: 048
     Dates: end: 201609
  3. FLUDARABINE [Suspect]
     Active Substance: FLUDARABINE PHOSPHATE
     Indication: CHRONIC LYMPHOCYTIC LEUKAEMIA
     Dosage: 25 MG/M2
  4. CYCLOPHOSPHAMIDE. [Suspect]
     Active Substance: CYCLOPHOSPHAMIDE
     Indication: CHRONIC LYMPHOCYTIC LEUKAEMIA
     Dosage: 250 MG/M2
  5. MIRTAZAPINE. [Suspect]
     Active Substance: MIRTAZAPINE
     Dosage: UNK
     Dates: start: 201707
  6. CYTARABINE. [Suspect]
     Active Substance: CYTARABINE
     Indication: IMMUNOSUPPRESSANT DRUG THERAPY
     Dosage: UNK
  7. IDELALISIB [Suspect]
     Active Substance: IDELALISIB
     Indication: CHRONIC LYMPHOCYTIC LEUKAEMIA
     Dosage: 150 MG, 2X/DAY
     Route: 048
     Dates: start: 201510
  8. RITUXIMAB. [Suspect]
     Active Substance: RITUXIMAB
     Indication: CHRONIC LYMPHOCYTIC LEUKAEMIA
     Dosage: 375 MG/M2 (RECEIVED 5 COURSES OUT OF 8)
     Dates: start: 201510, end: 201512
  9. ETOPOSIDE. [Suspect]
     Active Substance: ETOPOSIDE
     Indication: IMMUNOSUPPRESSANT DRUG THERAPY
     Dosage: UNK
  10. OFATUMUMAB [Suspect]
     Active Substance: OFATUMUMAB
     Dosage: 1 G
  11. MELPHALAN. [Suspect]
     Active Substance: MELPHALAN
     Indication: IMMUNOSUPPRESSANT DRUG THERAPY
     Dosage: UNK
  12. OFATUMUMAB [Suspect]
     Active Substance: OFATUMUMAB
     Indication: CHRONIC LYMPHOCYTIC LEUKAEMIA
     Dosage: 300 MG
  13. MEFLOQUINE [Suspect]
     Active Substance: MEFLOQUINE
     Dosage: UNK
     Dates: start: 201707
  14. BENDAMUSTINE [Suspect]
     Active Substance: BENDAMUSTINE
     Indication: CHRONIC LYMPHOCYTIC LEUKAEMIA
     Dosage: 70 MG/M2
  15. CARMUSTINE. [Suspect]
     Active Substance: CARMUSTINE
     Indication: IMMUNOSUPPRESSANT DRUG THERAPY
     Dosage: UNK

REACTIONS (8)
  - Hemianopia [Fatal]
  - Muscular weakness [Fatal]
  - Anosognosia [Fatal]
  - Progressive multifocal leukoencephalopathy [Fatal]
  - Ataxia [Fatal]
  - Status epilepticus [Fatal]
  - Immune reconstitution inflammatory syndrome [Fatal]
  - Muscle twitching [Fatal]

NARRATIVE: CASE EVENT DATE: 201612
